FAERS Safety Report 9595299 (Version 4)
Quarter: 2013Q4

REPORT INFORMATION
  Report Type: Spontaneous
  Country: US (occurrence: US)
  Receive Date: 20131004
  Receipt Date: 20131121
  Transmission Date: 20140711
  Serious: No
  Sender: FDA-Public Use
  Company Number: US-PFIZER INC-2013281922

PATIENT
  Age: 35 Year
  Sex: Male
  Weight: 100 kg

DRUGS (6)
  1. GEODON [Suspect]
     Indication: BIPOLAR DISORDER
     Dosage: 80 MG, 2X/DAY
     Route: 048
  2. GEODON [Suspect]
     Dosage: 40 MG, 2X/DAY
     Route: 048
  3. GEODON [Suspect]
     Dosage: 60 MG, DAILY
  4. BENADRYL [Concomitant]
     Dosage: 25 MG, 2X/DAY
  5. LITHIUM [Concomitant]
     Dosage: 600MG IN MORNING AND 900MG IN NIGHT
  6. TEMAZEPAM [Concomitant]
     Dosage: UNK

REACTIONS (5)
  - Dyskinesia [Not Recovered/Not Resolved]
  - Jaw disorder [Not Recovered/Not Resolved]
  - Throat irritation [Not Recovered/Not Resolved]
  - Bruxism [Unknown]
  - Nervous system disorder [Unknown]
